FAERS Safety Report 4279317-X (Version None)
Quarter: 2004Q1

REPORT INFORMATION
  Report Type: 
  Country: None (occurrence: None)
  Receive Date: 20040127
  Receipt Date: 20040116
  Transmission Date: 20041129
  Serious: Yes (Other)
  Sender: FDA-Public Use
  Company Number: FR-ROCHE-356787

PATIENT
  Age: 43 Year
  Sex: Female

DRUGS (8)
  1. XENICAL [Suspect]
     Indication: DRUG USE FOR UNKNOWN INDICATION
     Route: 065
  2. QUESTRAN [Concomitant]
  3. ERCEFURYL [Concomitant]
  4. IMODIUM [Concomitant]
  5. SULFASALAZINE [Concomitant]
  6. VENTOLIN [Concomitant]
  7. LUTERAN [Concomitant]
  8. FORADIL [Concomitant]

REACTIONS (1)
  - CROHN'S DISEASE [None]
